FAERS Safety Report 17334647 (Version 1)
Quarter: 2020Q1

REPORT INFORMATION
  Report Type: Spontaneous
  Country: CA (occurrence: CA)
  Receive Date: 20200128
  Receipt Date: 20200128
  Transmission Date: 20200409
  Serious: Yes (Life-Threatening, Hospitalization)
  Sender: FDA-Public Use
  Company Number: CA-TEVA-2020-CA-1176029

PATIENT
  Age: 32 Year
  Sex: Female

DRUGS (2)
  1. AMLODIPINE [Suspect]
     Active Substance: AMLODIPINE BESYLATE
     Indication: INTENTIONAL OVERDOSE
     Route: 048
  2. CARVEDILOL. [Concomitant]
     Active Substance: CARVEDILOL

REACTIONS (8)
  - Loss of consciousness [Recovered/Resolved]
  - Pancreatitis [Recovered/Resolved]
  - Intensive care [Recovered/Resolved]
  - Endotracheal intubation [Recovered/Resolved]
  - Acute respiratory distress syndrome [Recovered/Resolved]
  - Laboratory test interference [Recovered/Resolved]
  - Unresponsive to stimuli [Recovered/Resolved]
  - Hypotension [Recovered/Resolved]
